FAERS Safety Report 19866016 (Version 1)
Quarter: 2021Q3

REPORT INFORMATION
  Report Type: Spontaneous
  Country: US (occurrence: US)
  Receive Date: 20210921
  Receipt Date: 20210921
  Transmission Date: 20211014
  Serious: Yes (Other)
  Sender: FDA-Public Use
  Company Number: US-BAYER-2021-209693

PATIENT
  Sex: Female

DRUGS (1)
  1. MIRENA [Suspect]
     Active Substance: LEVONORGESTREL
     Indication: CONTRACEPTION
     Dosage: 20 ?G, CONT
     Route: 015
     Dates: start: 20210716, end: 20210909

REACTIONS (4)
  - Abdominal pain lower [None]
  - Genital haemorrhage [None]
  - Vulvovaginal pain [None]
  - Device dislocation [Recovered/Resolved]

NARRATIVE: CASE EVENT DATE: 202108
